FAERS Safety Report 13148760 (Version 1)
Quarter: 2017Q1

REPORT INFORMATION
  Report Type: Spontaneous
  Country: US (occurrence: US)
  Receive Date: 20170125
  Receipt Date: 20170125
  Transmission Date: 20170428
  Serious: No
  Sender: FDA-Public Use
  Company Number: US-PFIZER INC-2017031324

PATIENT
  Sex: Female

DRUGS (3)
  1. GENERIC BRAND MYLANTA REGULAR STRENGTH [Suspect]
     Active Substance: ALUMINUM HYDROXIDE\DIMETHICONE\MAGNESIUM HYDROXIDE
     Indication: ABDOMINAL DISCOMFORT
     Dosage: UNK
  2. NEXIUM 24HR [Suspect]
     Active Substance: ESOMEPRAZOLE MAGNESIUM
     Dosage: 22.3 MG, UNK
  3. IBUPROFEN. [Suspect]
     Active Substance: IBUPROFEN
     Indication: MUSCLE DISORDER
     Dosage: 800 MG, UNK

REACTIONS (3)
  - Rash [Unknown]
  - Pruritus [Unknown]
  - Rash erythematous [None]

NARRATIVE: CASE EVENT DATE: 20170120
